FAERS Safety Report 8001439-8 (Version None)
Quarter: 2011Q4

REPORT INFORMATION
  Report Type: 
  Country: None (occurrence: None)
  Receive Date: 20111222
  Receipt Date: 20111215
  Transmission Date: 20120403
  Serious: No
  Sender: FDA-Public Use
  Company Number: US-B.I. PHARMACEUTICALS,INC./RIDGEFIELD-2011-BP-25506BP

PATIENT
  Sex: Female
  Weight: 49.44 kg

DRUGS (13)
  1. PRADAXA [Suspect]
     Indication: ATRIAL FIBRILLATION
     Dosage: 300 MG
     Route: 048
     Dates: start: 20110520
  2. CLARITIN [Concomitant]
  3. FISH OIL [Concomitant]
     Indication: BLOOD TRIGLYCERIDES INCREASED
  4. LEVOTHYROXINE SODIUM [Concomitant]
     Indication: THYROID DISORDER
     Dosage: 75 MCG
  5. VITAMIN D [Concomitant]
     Indication: SUPPLEMENTATION THERAPY
     Dosage: 2000 U
  6. COSAMIN DS [Concomitant]
     Indication: ARTHRITIS
  7. CARTIA XT [Concomitant]
     Dosage: 240 MG
  8. MULTIVITAMIN [Concomitant]
     Indication: SUPPLEMENTATION THERAPY
  9. BIOTENE [Concomitant]
     Indication: SUPPLEMENTATION THERAPY
  10. FIBER CHOICE [Concomitant]
  11. CENTRUM SILVER [Concomitant]
     Indication: SUPPLEMENTATION THERAPY
  12. CALCIUM [Concomitant]
     Indication: SUPPLEMENTATION THERAPY
  13. LOVAZA [Concomitant]
     Indication: BLOOD TRIGLYCERIDES INCREASED

REACTIONS (2)
  - HIGH DENSITY LIPOPROTEIN INCREASED [None]
  - BLOOD TRIGLYCERIDES INCREASED [None]
